FAERS Safety Report 23644664 (Version 1)
Quarter: 2024Q1

REPORT INFORMATION
  Report Type: Spontaneous
  Country: US (occurrence: US)
  Receive Date: 20240318
  Receipt Date: 20240318
  Transmission Date: 20240410
  Serious: No
  Sender: FDA-Public Use
  Company Number: US-ESPERIONTHERAPEUTICS-2023USA01329

PATIENT
  Sex: Male

DRUGS (3)
  1. NEXLIZET [Suspect]
     Active Substance: BEMPEDOIC ACID\EZETIMIBE
     Indication: Product used for unknown indication
     Dosage: UNKNOWN
     Route: 048
  2. NEXLETOL [Concomitant]
     Active Substance: BEMPEDOIC ACID
     Dosage: UNKNOWN
     Route: 065
  3. ZETIA [Concomitant]
     Active Substance: EZETIMIBE
     Dosage: UNKNOWN
     Route: 065

REACTIONS (1)
  - Abdominal discomfort [Recovered/Resolved]
